FAERS Safety Report 7005973-9 (Version None)
Quarter: 2010Q3

REPORT INFORMATION
  Report Type: 
  Country: None (occurrence: None)
  Receive Date: 20100921
  Receipt Date: 20100911
  Transmission Date: 20110219
  Serious: Yes (Other)
  Sender: FDA-Public Use
  Company Number: US-PURDUE-USA-2010-0046813

PATIENT
  Sex: Male

DRUGS (2)
  1. OXYCONTIN [Suspect]
     Indication: PAIN
     Dosage: 160 MG, TID
  2. OXYCONTIN [Suspect]
     Indication: BACK INJURY

REACTIONS (2)
  - FAECES HARD [None]
  - SPINAL COLUMN STENOSIS [None]
